FAERS Safety Report 13168430 (Version 1)
Quarter: 2017Q1

REPORT INFORMATION
  Report Type: Spontaneous
  Country: US (occurrence: US)
  Receive Date: 20170131
  Receipt Date: 20170131
  Transmission Date: 20170428
  Serious: No
  Sender: FDA-Public Use
  Company Number: US-PFIZER INC-2017040362

PATIENT
  Age: 12 Year
  Sex: Female
  Weight: 55 kg

DRUGS (2)
  1. TAPAZOLE [Suspect]
     Active Substance: METHIMAZOLE
     Indication: BASEDOW^S DISEASE
     Dosage: 10 MG, 2X/DAY
     Route: 048
     Dates: end: 20170120
  2. CLARITIN [Concomitant]
     Active Substance: LORATADINE
     Indication: PRURITUS
     Dosage: 10 MG, AS NEEDED DAILY
     Route: 048
     Dates: start: 20160728

REACTIONS (2)
  - Myalgia [Unknown]
  - Pain [Unknown]
